FAERS Safety Report 7825612-4 (Version None)
Quarter: 2011Q4

REPORT INFORMATION
  Report Type: 
  Country: None (occurrence: None)
  Receive Date: 20111019
  Receipt Date: 20111013
  Transmission Date: 20120403
  Serious: Yes (Other)
  Sender: FDA-Public Use
  Company Number: CA-PFIZER INC-2011189573

PATIENT
  Age: 85 Year
  Sex: Female

DRUGS (4)
  1. ALPHAGAN [Concomitant]
     Dosage: UNK
  2. COSOPT [Concomitant]
     Indication: INTRAOCULAR PRESSURE INCREASED
     Dosage: UNK, 2X/DAY
     Dates: start: 19960101
  3. ISOPTO CARPINE [Concomitant]
     Dosage: UNK
  4. XALATAN [Suspect]
     Indication: GLAUCOMA
     Dosage: 1 GTT IN BOTH EYES, 1X/DAY
     Route: 047

REACTIONS (2)
  - CATARACT [None]
  - EYE LASER SURGERY [None]
